FAERS Safety Report 16114097 (Version 2)
Quarter: 2021Q2

REPORT INFORMATION
  Report Type: Spontaneous
  Country: US (occurrence: US)
  Receive Date: 20190325
  Receipt Date: 20210413
  Transmission Date: 20210716
  Serious: No
  Sender: FDA-Public Use
  Company Number: US-ALLERGAN-1814911US

PATIENT
  Sex: Male

DRUGS (1)
  1. LATISSE [Suspect]
     Active Substance: BIMATOPROST
     Indication: MADAROSIS
     Dosage: UNK UNK, QHS (ONCE A DAY)
     Route: 061

REACTIONS (3)
  - Product administered at inappropriate site [Unknown]
  - Prescription drug used without a prescription [Unknown]
  - Wrong technique in product usage process [Unknown]
